FAERS Safety Report 14768558 (Version 1)
Quarter: 2018Q2

REPORT INFORMATION
  Report Type: Spontaneous
  Country: US (occurrence: US)
  Receive Date: 20180417
  Receipt Date: 20180417
  Transmission Date: 20180711
  Serious: Yes (Other)
  Sender: FDA-Public Use
  Company Number: US-PENTEC HEALTH-2018PEN00005

PATIENT
  Age: 75 Year
  Sex: Female

DRUGS (2)
  1. VANCOMYCIN HYDROCHLORIDE. [Suspect]
     Active Substance: VANCOMYCIN HYDROCHLORIDE
     Dosage: UNK, ONCE
     Route: 031
  2. VANCOMYCIN HYDROCHLORIDE. [Suspect]
     Active Substance: VANCOMYCIN HYDROCHLORIDE
     Indication: CATARACT OPERATION
     Dosage: UNK, ONCE
     Route: 031

REACTIONS (2)
  - Choroidal detachment [Recovered/Resolved]
  - Retinal vascular disorder [Recovered/Resolved]
